FAERS Safety Report 13158237 (Version 1)
Quarter: 2017Q1

REPORT INFORMATION
  Report Type: Spontaneous
  Country: US (occurrence: US)
  Receive Date: 20170126
  Receipt Date: 20170126
  Transmission Date: 20170428
  Serious: Yes (Hospitalization)
  Sender: FDA-Public Use
  Company Number: None

PATIENT
  Age: 77 Year
  Sex: Male
  Weight: 118.4 kg

DRUGS (2)
  1. INDOMETHACIN. [Suspect]
     Active Substance: INDOMETHACIN
     Indication: RENAL FAILURE
     Route: 048
     Dates: start: 20130627, end: 20130629
  2. INDOMETHACIN. [Suspect]
     Active Substance: INDOMETHACIN
     Indication: CARDIAC FAILURE CONGESTIVE
     Route: 048
     Dates: start: 20130627, end: 20130629

REACTIONS (1)
  - Cardiac failure congestive [None]

NARRATIVE: CASE EVENT DATE: 20130628
